FAERS Safety Report 9817968 (Version 1)
Quarter: 2014Q1

REPORT INFORMATION
  Report Type: Spontaneous
  Country: US (occurrence: None)
  Receive Date: 20140110
  Receipt Date: 20140110
  Transmission Date: 20141002
  Serious: Yes (Other)
  Sender: FDA-Public Use
  Company Number: None

PATIENT
  Age: 84 Year
  Sex: Female

DRUGS (1)
  1. FORTEO [Suspect]
     Indication: ELDERLY
     Dosage: INJECT 0.08 ML (20 MCG) UNDER THE SKIN EVERY DAY INTO THE THIGH OR ABDOMINAL WALL
     Dates: start: 201201

REACTIONS (5)
  - Alopecia [None]
  - Renal neoplasm [None]
  - Hepatic neoplasm [None]
  - Bladder neoplasm [None]
  - Splenic neoplasm malignancy unspecified [None]
